FAERS Safety Report 7394802-X (Version None)
Quarter: 2011Q2

REPORT INFORMATION
  Report Type: 
  Country: None (occurrence: None)
  Receive Date: 20110405
  Receipt Date: 20110325
  Transmission Date: 20111010
  Serious: Yes (Hospitalization)
  Sender: FDA-Public Use
  Company Number: A0773089A

PATIENT
  Age: 29 Year
  Sex: Female
  Weight: 73.6 kg

DRUGS (5)
  1. LISINOPRIL [Concomitant]
  2. METFORMIN [Concomitant]
  3. TRICOR [Concomitant]
  4. AVANDIA [Suspect]
     Dosage: 4MG UNKNOWN
     Route: 048
     Dates: start: 20020116, end: 20060607
  5. AVANDAMET [Suspect]
     Route: 048
     Dates: start: 20040915, end: 20050501

REACTIONS (1)
  - MYOCARDIAL INFARCTION [None]
